FAERS Safety Report 22017354 (Version 1)
Quarter: 2023Q1

REPORT INFORMATION
  Report Type: Spontaneous
  Country: DE (occurrence: DE)
  Receive Date: 20230221
  Receipt Date: 20230221
  Transmission Date: 20230418
  Serious: Yes (Other)
  Sender: FDA-Public Use
  Company Number: DE-002147023-NVSC2021DE186991

PATIENT

DRUGS (4)
  1. PROPRANOLOL [Suspect]
     Active Substance: PROPRANOLOL HYDROCHLORIDE
     Indication: Cardiac hypertrophy
     Dosage: UNK
     Route: 065
  2. PROPRANOLOL [Suspect]
     Active Substance: PROPRANOLOL HYDROCHLORIDE
     Indication: Disease progression
  3. TRAMETINIB [Suspect]
     Active Substance: TRAMETINIB
     Indication: Cardiac hypertrophy
     Dosage: UNK, STEADY STATE, 0.02-0.03 MG/KG/DAY)
     Route: 065
  4. TRAMETINIB [Suspect]
     Active Substance: TRAMETINIB
     Indication: Disease progression

REACTIONS (5)
  - Cardiac hypertrophy [Unknown]
  - Cardiac failure [Unknown]
  - Rash [Recovered/Resolved]
  - General physical health deterioration [Unknown]
  - Alopecia [Recovered/Resolved]
